FAERS Safety Report 15309509 (Version 1)
Quarter: 2018Q3

REPORT INFORMATION
  Report Type: Spontaneous
  Country: US (occurrence: US)
  Receive Date: 20180812
  Receipt Date: 20180812
  Transmission Date: 20181010
  Serious: Yes (Disabling)
  Sender: FDA-Public Use
  Company Number: None

PATIENT
  Sex: Male

DRUGS (1)
  1. LAMICTAL [Suspect]
     Active Substance: LAMOTRIGINE
     Indication: OPPOSITIONAL DEFIANT DISORDER
     Route: 048

REACTIONS (7)
  - Rash [None]
  - Insomnia [None]
  - Psychotic behaviour [None]
  - Facial paralysis [None]
  - Agitation [None]
  - Aggression [None]
  - Hostility [None]
